FAERS Safety Report 5489213-8 (Version None)
Quarter: 2007Q4

REPORT INFORMATION
  Report Type: 
  Country: None (occurrence: None)
  Receive Date: 20071016
  Receipt Date: 20071001
  Transmission Date: 20080405
  Serious: Yes (Other)
  Sender: FDA-Public Use
  Company Number: 2007PV033510

PATIENT
  Age: 55 Year
  Sex: Male

DRUGS (5)
  1. SMYLIN INJECTION (0.6 MG/ML) [Suspect]
     Indication: TYPE 2 DIABETES MELLITUS
     Dosage: 120 MCG; TID; SC; 15 MCG; TID; SC
     Route: 058
     Dates: start: 20070717, end: 20070801
  2. SMYLIN INJECTION (0.6 MG/ML) [Suspect]
     Indication: TYPE 2 DIABETES MELLITUS
     Dosage: 120 MCG; TID; SC; 15 MCG; TID; SC
     Route: 058
     Dates: start: 20070801
  3. HUMALOG [Concomitant]
  4. NOVOLOG [Concomitant]
  5. ANTIHYPERTENSIVES [Concomitant]

REACTIONS (5)
  - BLOOD GLUCOSE INCREASED [None]
  - BLOOD PRESSURE DECREASED [None]
  - HYPOGLYCAEMIC UNCONSCIOUSNESS [None]
  - INCORRECT DOSE ADMINISTERED [None]
  - THERAPY REGIMEN CHANGED [None]
